FAERS Safety Report 5295230-3 (Version None)
Quarter: 2007Q2

REPORT INFORMATION
  Report Type: 
  Country: None (occurrence: None)
  Receive Date: 20070406
  Receipt Date: 20070322
  Transmission Date: 20071010
  Serious: Yes (Death, Hospitalization)
  Sender: FDA-Public Use
  Company Number: 2007BM000043

PATIENT
  Age: 68 Year
  Sex: Male

DRUGS (1)
  1. PREDNISOLONE [Suspect]
     Indication: TEMPORAL ARTERITIS
     Dosage: SEE IMAGE

REACTIONS (23)
  - ABSCESS [None]
  - ANAEMIA [None]
  - AORTIC VALVE CALCIFICATION [None]
  - AORTIC VALVE STENOSIS [None]
  - ATRIOVENTRICULAR BLOCK [None]
  - BLOOD CULTURE POSITIVE [None]
  - BLOOD PRESSURE SYSTOLIC INCREASED [None]
  - C-REACTIVE PROTEIN INCREASED [None]
  - CARDIAC MURMUR [None]
  - CARDIAC MYXOMA [None]
  - CARDIOMEGALY [None]
  - CEREBROVASCULAR ACCIDENT [None]
  - CHEST PAIN [None]
  - CONVULSION [None]
  - CULTURE POSITIVE [None]
  - DYSPNOEA [None]
  - ENDOCARDITIS [None]
  - IMMUNOSUPPRESSION [None]
  - LEUKOCYTOSIS [None]
  - PULMONARY CONGESTION [None]
  - PYREXIA [None]
  - STAPHYLOCOCCAL INFECTION [None]
  - WEIGHT DECREASED [None]
